FAERS Safety Report 4981069-2 (Version None)
Quarter: 2006Q2

REPORT INFORMATION
  Report Type: 
  Country: None (occurrence: None)
  Receive Date: 20060421
  Receipt Date: 20060407
  Transmission Date: 20061013
  Serious: Yes (Other)
  Sender: FDA-Public Use
  Company Number: 200611253BWH

PATIENT
  Age: 46 Year
  Sex: Male
  Weight: 62.5964 kg

DRUGS (1)
  1. AVELOX [Suspect]
     Indication: SINUSITIS
     Dosage: 400 MG, ORAL
     Route: 048

REACTIONS (4)
  - ANXIETY [None]
  - ASTHENIA [None]
  - OPTIC NEUROPATHY [None]
  - TREMOR [None]
